FAERS Safety Report 5241936-1 (Version None)
Quarter: 2007Q1

REPORT INFORMATION
  Report Type: 
  Country: None (occurrence: None)
  Receive Date: 20070220
  Receipt Date: 20050214
  Transmission Date: 20070707
  Serious: Yes (Death, Hospitalization)
  Sender: FDA-Public Use
  Company Number: IL-ROXANE LABORATORIES, INC-2007-BP-02354RO

PATIENT
  Age: 80 Year
  Sex: Male

DRUGS (5)
  1. CYCLOPHOSPHAMIDE [Suspect]
     Indication: NON-HODGKIN'S LYMPHOMA
  2. PREDNISONE 50MG TAB [Suspect]
     Indication: NON-HODGKIN'S LYMPHOMA
  3. RITUXIMAB [Suspect]
     Indication: NON-HODGKIN'S LYMPHOMA
     Dosage: 375 MG/M2 EVERY 21 DAYS
  4. DOXORUBICIN HCL [Suspect]
     Indication: NON-HODGKIN'S LYMPHOMA
  5. VINCRISTINE [Suspect]
     Indication: NON-HODGKIN'S LYMPHOMA

REACTIONS (4)
  - COUGH [None]
  - DYSPNOEA [None]
  - INTERSTITIAL LUNG DISEASE [None]
  - RESPIRATORY FAILURE [None]
